FAERS Safety Report 12467455 (Version 1)
Quarter: 2016Q2

REPORT INFORMATION
  Report Type: Spontaneous
  Country: US (occurrence: US)
  Receive Date: 20160615
  Receipt Date: 20160615
  Transmission Date: 20160815
  Serious: Yes (Death, Other)
  Sender: FDA-Public Use
  Company Number: US-JNJFOC-20160608676

PATIENT
  Age: 17 Day
  Sex: Female
  Weight: .87 kg

DRUGS (2)
  1. FAMOTIDINE. [Suspect]
     Active Substance: FAMOTIDINE
     Indication: GASTRITIS
     Route: 065
  2. FAMOTIDINE. [Suspect]
     Active Substance: FAMOTIDINE
     Route: 065

REACTIONS (5)
  - Acute kidney injury [Fatal]
  - Metabolic acidosis [Fatal]
  - Off label use [Fatal]
  - Product use issue [Fatal]
  - Necrotising colitis [Fatal]
